FAERS Safety Report 6247820-9 (Version None)
Quarter: 2009Q2

REPORT INFORMATION
  Report Type: 
  Country: None (occurrence: None)
  Receive Date: 20090626
  Receipt Date: 20090615
  Transmission Date: 20091009
  Serious: Yes (Hospitalization)
  Sender: FDA-Public Use
  Company Number: HU-ELI_LILLY_AND_COMPANY-HU200906003573

PATIENT
  Age: 63 Year
  Sex: Female

DRUGS (11)
  1. GEMZAR [Suspect]
     Indication: OVARIAN CANCER
     Dosage: 3600 MG, OTHER
     Route: 042
  2. GEMZAR [Suspect]
     Dosage: 1400 MG, UNKNOWN (SECOND PART OF FIRST CYCLE)
  3. CISPLATIN [Concomitant]
     Dosage: 100 MG, UNK
  4. CALCIUM [Concomitant]
  5. CORTICOSTEROIDS [Concomitant]
  6. ATORVA [Concomitant]
     Dosage: 20 MG, EACH EVENING
     Route: 048
  7. ATORVA [Concomitant]
     Dosage: 40 MG, EACH EVENING
     Route: 048
  8. ASPIRIN [Concomitant]
     Dosage: 100 MG, DAILY (1/D) (ONE TABLET)
     Route: 048
  9. RUTASCORBIN [Concomitant]
     Dosage: UNK, UNKNOWN
     Route: 065
  10. RUTASCORBIN [Concomitant]
     Dosage: 2 D/F, 3/D
     Route: 048
  11. NEUPOGEN [Concomitant]
     Indication: THROMBOCYTOPENIA
     Dosage: 1 D/F, UNKNOWN
     Route: 065

REACTIONS (5)
  - ERYTHEMA [None]
  - LEUKOPENIA [None]
  - LIVER DISORDER [None]
  - NEPHROLITHIASIS [None]
  - THROMBOCYTOPENIA [None]
